FAERS Safety Report 9519051 (Version 1)
Quarter: 2013Q3

REPORT INFORMATION
  Report Type: Spontaneous
  Country: GT (occurrence: GT)
  Receive Date: 20130912
  Receipt Date: 20130912
  Transmission Date: 20140515
  Serious: Yes (Hospitalization)
  Sender: FDA-Public Use
  Company Number: GT-B.I. PHARMACEUTICALS,INC./RIDGEFIELD-2013-MX-00284MX

PATIENT
  Age: 60 Year
  Sex: Male

DRUGS (1)
  1. TRAJENTA [Suspect]
     Indication: TYPE 2 DIABETES MELLITUS
     Dosage: 1 TABLET DAILY
     Route: 048
     Dates: start: 20130902

REACTIONS (2)
  - Hepatomegaly [Recovered/Resolved]
  - Transaminases increased [Recovered/Resolved]
